FAERS Safety Report 13553210 (Version 1)
Quarter: 2017Q2

REPORT INFORMATION
  Report Type: Spontaneous
  Country: US (occurrence: US)
  Receive Date: 20170517
  Receipt Date: 20170517
  Transmission Date: 20170830
  Serious: Yes (Hospitalization, Other)
  Sender: FDA-Public Use
  Company Number: US-ZYDUS-015214

PATIENT
  Age: 63 Year
  Sex: Male

DRUGS (3)
  1. CYCLOBENZAPRINE. [Suspect]
     Active Substance: CYCLOBENZAPRINE
     Indication: PRODUCT USED FOR UNKNOWN INDICATION
     Route: 065
  2. IBUPROFEN. [Suspect]
     Active Substance: IBUPROFEN
     Indication: PRODUCT USED FOR UNKNOWN INDICATION
     Route: 065
  3. MELOXICAM. [Suspect]
     Active Substance: MELOXICAM
     Indication: PRODUCT USED FOR UNKNOWN INDICATION
     Route: 065

REACTIONS (14)
  - Condition aggravated [Unknown]
  - Nausea [Recovered/Resolved]
  - Retching [Recovered/Resolved]
  - Electrocardiogram ST segment elevation [Recovered/Resolved]
  - Dyspnoea [Recovering/Resolving]
  - Agitation [Unknown]
  - Delirium [Recovering/Resolving]
  - Atrial fibrillation [Recovering/Resolving]
  - Ileus [Recovered/Resolved]
  - Overdose [Unknown]
  - Disorientation [Unknown]
  - Mental status changes [Unknown]
  - Bowel movement irregularity [Recovered/Resolved]
  - Abdominal distension [Recovered/Resolved]
